FAERS Safety Report 22595358 (Version 2)
Quarter: 2023Q2

REPORT INFORMATION
  Report Type: Spontaneous
  Country: JP (occurrence: JP)
  Receive Date: 20230613
  Receipt Date: 20230622
  Transmission Date: 20230722
  Serious: Yes (Hospitalization, Other)
  Sender: FDA-Public Use
  Company Number: JP-MSD-2306JPN000841JAA

PATIENT
  Age: 72 Year
  Sex: Female

DRUGS (1)
  1. KEYTRUDA [Suspect]
     Active Substance: PEMBROLIZUMAB
     Indication: Lung adenocarcinoma stage III
     Dosage: UNK
     Route: 065

REACTIONS (3)
  - Malignant neoplasm progression [Unknown]
  - Cardiac tamponade [Unknown]
  - Cardiac dysfunction [Unknown]
